FAERS Safety Report 17768123 (Version 1)
Quarter: 2020Q2

REPORT INFORMATION
  Report Type: Report from Study
  Country: US (occurrence: US)
  Receive Date: 20200511
  Receipt Date: 20200511
  Transmission Date: 20200714
  Serious: Yes (Death, Other)
  Sender: FDA-Public Use
  Company Number: US-009507513-2001USA008342

PATIENT
  Age: 67 Year
  Sex: Male
  Weight: 79.82 kg

DRUGS (1)
  1. KEYTRUDA [Suspect]
     Active Substance: PEMBROLIZUMAB
     Indication: SQUAMOUS CELL CARCINOMA
     Dosage: 2 VIALS (200MG), Q 21 DAYS
     Route: 042
     Dates: start: 20190730, end: 20191231

REACTIONS (9)
  - Myocardial infarction [Fatal]
  - Balance disorder [Unknown]
  - Insomnia [Unknown]
  - Deafness [Unknown]
  - Back pain [Unknown]
  - Ear pain [Unknown]
  - Thrombophlebitis superficial [Recovered/Resolved]
  - Dysphagia [Unknown]
  - Limb injury [Recovering/Resolving]

NARRATIVE: CASE EVENT DATE: 20191209
